FAERS Safety Report 4353243-X (Version None)
Quarter: 2004Q2

REPORT INFORMATION
  Report Type: 
  Country: None (occurrence: None)
  Receive Date: 20040430
  Receipt Date: 20040420
  Transmission Date: 20050107
  Serious: Yes (Death)
  Sender: FDA-Public Use
  Company Number: 2003040619

PATIENT
  Age: 51 Year
  Sex: Female
  Weight: 84.369 kg

DRUGS (35)
  1. ZITHROMAX [Suspect]
     Indication: COUGH
     Dates: start: 20030121
  2. ZITHROMAX [Suspect]
     Indication: HOARSENESS
     Dates: start: 20030121
  3. ZITHROMAX [Suspect]
     Indication: ILL-DEFINED DISORDER
     Dates: start: 20030121
  4. ZITHROMAX [Suspect]
     Indication: RHINORRHOEA
     Dates: start: 20030121
  5. ETANERCEPT (ETANERCEPT) [Suspect]
     Indication: ILL-DEFINED DISORDER
  6. METHOTREXATE [Suspect]
     Indication: ILL-DEFINED DISORDER
     Dosage: 10 MG (WEEKLY), ORAL
     Route: 048
     Dates: start: 19990726
  7. SULFASALAZINE [Concomitant]
  8. FLUOXETINE [Concomitant]
  9. CLONAZEPAM [Concomitant]
  10. ANOVLAR (NORETHISTERONE ACETATE, ETHINYLESTRADIOL) [Concomitant]
  11. MELATONIN (MELATONIN) [Concomitant]
  12. OMEPRAZOLE [Concomitant]
  13. ARTHROTEC [Concomitant]
  14. FERROUS SULFATE TAB [Concomitant]
  15. LORAZEPAM [Concomitant]
  16. TRAMADOL HCL [Concomitant]
  17. FEXOFENADINE HYDROCHLORIDE [Concomitant]
  18. BUSPIRONE HCL [Concomitant]
  19. TRAZODONE HCL [Concomitant]
  20. ZOLPIDEM TARTRATE [Concomitant]
  21. VALPROATE SODIUM [Concomitant]
  22. LEUCOVORIN CALCIUM [Concomitant]
  23. MULTIVITAMINS (ERGOCALCIFEROL/ASCORBIC ACID, FOLIC ACID, THIAMINE HYDR [Concomitant]
  24. TOCOPHEROL CONCENTRATE CAP [Concomitant]
  25. VENLAFAXINE HCL [Concomitant]
  26. NIZATIDINE [Concomitant]
  27. DICYCLOVERINE HYDROCHLORIDE (DICYCLOVERINE HYDROCHLORIDE) [Concomitant]
  28. CHOLESTYRAMINE [Concomitant]
  29. NYSTATIN [Concomitant]
  30. TRIAMCINOLONE [Concomitant]
  31. VALACICLOVIR HYDROCHLORIDE (VALACICLOVIR HYDROCHLORIDE) [Concomitant]
  32. HYDROCODONE (HYDROCODONE) [Concomitant]
  33. ULTRACET [Concomitant]
  34. FLUCONAZOLE [Concomitant]
  35. SILDENAFIL CITRATE (SILDENAFIL CITRATE) [Concomitant]

REACTIONS (44)
  - ABDOMINAL DISTENSION [None]
  - ABDOMINAL PAIN [None]
  - ALBUMIN GLOBULIN RATIO INCREASED [None]
  - ALCOHOLISM [None]
  - BLOOD CALCIUM DECREASED [None]
  - BLOOD CREATININE DECREASED [None]
  - BLOOD PHOSPHORUS DECREASED [None]
  - BLOOD UREA DECREASED [None]
  - BLOOD UREA NITROGEN/CREATININE RATIO DECREASED [None]
  - CARDIAC STRESS TEST ABNORMAL [None]
  - CHANGE OF BOWEL HABIT [None]
  - COLITIS MICROSCOPIC [None]
  - CONDITION AGGRAVATED [None]
  - COSTOCHONDRITIS [None]
  - COUGH [None]
  - DECREASED APPETITE [None]
  - DEPRESSION [None]
  - DRUG EFFECT DECREASED [None]
  - DYSPEPSIA [None]
  - ERUCTATION [None]
  - FAECES DISCOLOURED [None]
  - FEELING ABNORMAL [None]
  - FLATULENCE [None]
  - GAMMA-GLUTAMYLTRANSFERASE DECREASED [None]
  - GRANULOCYTE COUNT INCREASED [None]
  - HAEMATOCRIT DECREASED [None]
  - HAEMOGLOBIN DECREASED [None]
  - HAEMORRHOIDS [None]
  - HOARSENESS [None]
  - LIBIDO DECREASED [None]
  - LYMPHOCYTE COUNT DECREASED [None]
  - MEAN CELL HAEMOGLOBIN CONCENTRATION INCREASED [None]
  - MEAN CELL HAEMOGLOBIN INCREASED [None]
  - MEAN CELL VOLUME INCREASED [None]
  - NASAL SINUS DRAINAGE [None]
  - NAUSEA [None]
  - PYREXIA [None]
  - RED BLOOD CELL COUNT DECREASED [None]
  - RED BLOOD CELL SEDIMENTATION RATE INCREASED [None]
  - RHINORRHOEA [None]
  - VAGINAL MYCOSIS [None]
  - VOMITING [None]
  - WEIGHT DECREASED [None]
  - WHITE BLOOD CELL COUNT DECREASED [None]
